FAERS Safety Report 7998718-7 (Version None)
Quarter: 2011Q4

REPORT INFORMATION
  Report Type: 
  Country: None (occurrence: None)
  Receive Date: 20111221
  Receipt Date: 20111208
  Transmission Date: 20120403
  Serious: Yes (Hospitalization)
  Sender: FDA-Public Use
  Company Number: JP-ALLERGAN-1109930US

PATIENT
  Age: 81 Year
  Sex: Female

DRUGS (11)
  1. LUMIGAN [Suspect]
     Dosage: 1 GTT, QD
     Route: 047
  2. AZOPT [Concomitant]
  3. RINDERON A [Concomitant]
  4. LUMIGAN [Suspect]
     Indication: GLAUCOMA
     Dosage: 2 GTT, QD
     Route: 047
     Dates: start: 20100628, end: 20110215
  5. DIAMOX SRC [Concomitant]
  6. CARTEOLOL HYDROCHLORIDE [Concomitant]
     Dosage: UNK
  7. LEVOFLOXACIN [Concomitant]
  8. MITOMYCIN [Concomitant]
  9. ASPARA K [Concomitant]
  10. HYALEIN [Concomitant]
  11. AMARYL [Concomitant]

REACTIONS (2)
  - CORNEAL EROSION [None]
  - INTRAOCULAR PRESSURE INCREASED [None]
